FAERS Safety Report 15785950 (Version 2)
Quarter: 2019Q2

REPORT INFORMATION
  Report Type: Report from Study
  Country: US (occurrence: US)
  Receive Date: 20190103
  Receipt Date: 20190418
  Transmission Date: 20190711
  Serious: Yes (Other)
  Sender: FDA-Public Use
  Company Number: US-SA-2018SA211938

PATIENT
  Age: 48 Year
  Sex: Male

DRUGS (7)
  1. TERIFLUNOMIDE. [Suspect]
     Active Substance: TERIFLUNOMIDE
     Indication: MULTIPLE SCLEROSIS
     Dosage: 14 MG, QD
     Route: 048
     Dates: start: 20180529
  2. KLONOPIN [Concomitant]
     Active Substance: CLONAZEPAM
  3. XARELTO [Concomitant]
     Active Substance: RIVAROXABAN
  4. GABAPENTIN. [Concomitant]
     Active Substance: GABAPENTIN
  5. BACLOFEN. [Concomitant]
     Active Substance: BACLOFEN
  6. BACLOFEN. [Concomitant]
     Active Substance: BACLOFEN
  7. XARELTO [Concomitant]
     Active Substance: RIVAROXABAN

REACTIONS (4)
  - Blindness [Not Recovered/Not Resolved]
  - Tremor [Not Recovered/Not Resolved]
  - Unevaluable event [Not Recovered/Not Resolved]
  - Multiple sclerosis relapse [Not Recovered/Not Resolved]

NARRATIVE: CASE EVENT DATE: 201807
